FAERS Safety Report 6059787-7 (Version None)
Quarter: 2009Q1

REPORT INFORMATION
  Report Type: 
  Country: None (occurrence: None)
  Receive Date: 20090130
  Receipt Date: 20090123
  Transmission Date: 20090719
  Serious: Yes (Other)
  Sender: FDA-Public Use
  Company Number: US-ABBOTT-09P-163-0499544-00

PATIENT
  Weight: 74.91 kg

DRUGS (6)
  1. HUMIRA [Suspect]
     Indication: ANKYLOSING SPONDYLITIS
     Route: 058
     Dates: start: 20080401, end: 20090118
  2. TOPAMAX [Concomitant]
     Indication: COMPLEX PARTIAL SEIZURES
     Route: 048
  3. TOPAMAX [Concomitant]
     Indication: MIGRAINE
  4. IMITREX [Concomitant]
     Indication: HEADACHE
  5. IMITREX [Concomitant]
     Indication: MIGRAINE
  6. NASONEX [Concomitant]
     Indication: DRUG USE FOR UNKNOWN INDICATION
     Route: 045

REACTIONS (15)
  - ABDOMINAL RIGIDITY [None]
  - ASTHENIA [None]
  - BEDRIDDEN [None]
  - BODY TEMPERATURE DECREASED [None]
  - CHEST PAIN [None]
  - CHILLS [None]
  - DIZZINESS [None]
  - FATIGUE [None]
  - FEELING ABNORMAL [None]
  - GRAND MAL CONVULSION [None]
  - MALAISE [None]
  - MIGRAINE [None]
  - NAUSEA [None]
  - PALLOR [None]
  - WEIGHT DECREASED [None]
